FAERS Safety Report 7506851-9 (Version None)
Quarter: 2011Q2

REPORT INFORMATION
  Report Type: 
  Country: None (occurrence: None)
  Receive Date: 20110526
  Receipt Date: 20110518
  Transmission Date: 20111010
  Serious: Yes (Hospitalization)
  Sender: FDA-Public Use
  Company Number: B0720605A

PATIENT
  Sex: Male

DRUGS (3)
  1. SULFAMETHOXAZOLE [Concomitant]
     Route: 065
  2. ZANTAC [Suspect]
     Indication: GASTRITIS PROPHYLAXIS
     Route: 048
  3. LEVOFLOXACIN [Concomitant]
     Route: 065

REACTIONS (1)
  - DRUG ERUPTION [None]
